FAERS Safety Report 21811904 (Version 1)
Quarter: 2023Q1

REPORT INFORMATION
  Report Type: Spontaneous
  Country: PK (occurrence: PK)
  Receive Date: 20230103
  Receipt Date: 20230103
  Transmission Date: 20230417
  Serious: Yes (Death)
  Sender: FDA-Public Use
  Company Number: PK-PFIZER INC-202200383645

PATIENT
  Age: 73 Year
  Sex: Female

DRUGS (16)
  1. IBRANCE [Suspect]
     Active Substance: PALBOCICLIB
     Indication: Breast cancer
     Dosage: 125 MG
     Route: 048
  2. IBRANCE [Suspect]
     Active Substance: PALBOCICLIB
     Dosage: 9-21 (ILLEGIBLE) 7 DS OFF
     Route: 048
  3. IBRANCE [Suspect]
     Active Substance: PALBOCICLIB
     Dosage: 125 MG
     Route: 048
  4. IBRANCE [Suspect]
     Active Substance: PALBOCICLIB
     Dosage: 100 MG
     Route: 048
     Dates: start: 202207, end: 202212
  5. PREBICA [Concomitant]
     Dosage: 75 MG
  6. REZZ [Concomitant]
     Dosage: 20 MG
  7. ITOSEL [Concomitant]
     Dosage: 50 MG
  8. PANADOL [Concomitant]
     Active Substance: ACETAMINOPHEN
     Dosage: UNK
  9. ONSET FORTE [Concomitant]
     Dosage: 8 MG
  10. IPRIDE [Concomitant]
     Dosage: 50 MG
  11. RISEK [OMEPRAZOLE] [Concomitant]
     Dosage: 40 MG
  12. TONOFLEX P [Concomitant]
     Dosage: UNK
  13. CYTOPAN [Concomitant]
     Dosage: 75 MG
  14. GABICA [Concomitant]
     Dosage: 150 MG
  15. AMINO ACIDS, SOURCE UNSPECIFIED [Concomitant]
     Active Substance: AMINO ACIDS, SOURCE UNSPECIFIED
     Dosage: UNK
  16. QALSAN D [Concomitant]
     Dosage: UNK

REACTIONS (4)
  - Death [Fatal]
  - Pleural effusion [Unknown]
  - Neoplasm progression [Unknown]
  - Off label use [Unknown]
